FAERS Safety Report 13848036 (Version 1)
Quarter: 2017Q3

REPORT INFORMATION
  Report Type: Spontaneous
  Country: US (occurrence: US)
  Receive Date: 20170808
  Receipt Date: 20170808
  Transmission Date: 20171127
  Serious: Yes (Disabling)
  Sender: FDA-Public Use
  Company Number: None

PATIENT
  Age: 55 Year
  Sex: Female
  Weight: 57.6 kg

DRUGS (3)
  1. CIPROFLOXIN [Suspect]
     Active Substance: CIPROFLOXACIN
     Indication: URINARY TRACT INFECTION
     Dosage: ?          QUANTITY:10 CAPSULE(S);?
     Route: 048
     Dates: start: 20170626, end: 20170705
  2. RIZATRIPTAN. [Concomitant]
     Active Substance: RIZATRIPTAN
  3. ADVIL [Concomitant]
     Active Substance: IBUPROFEN

REACTIONS (4)
  - Tendon pain [None]
  - Hypoaesthesia [None]
  - Palpitations [None]
  - Depressed mood [None]

NARRATIVE: CASE EVENT DATE: 20170705
